FAERS Safety Report 4391777-2 (Version None)
Quarter: 2004Q3

REPORT INFORMATION
  Report Type: 
  Country: None (occurrence: None)
  Receive Date: 20040707
  Receipt Date: 20040525
  Transmission Date: 20050211
  Serious: Yes (Other)
  Sender: FDA-Public Use
  Company Number: US-MERCK-0405USA01845

PATIENT
  Age: 56 Year
  Sex: Male
  Weight: 91 kg

DRUGS (7)
  1. LEXAPRO [Concomitant]
     Route: 065
  2. NEXIUM [Concomitant]
     Route: 065
  3. ADVAIR DISKUS 100/50 [Concomitant]
     Route: 065
  4. BENICAR [Concomitant]
     Route: 065
  5. VIOXX [Suspect]
     Indication: OSTEOARTHRITIS
     Route: 048
     Dates: start: 20010601, end: 20030403
  6. VIOXX [Suspect]
     Indication: NECK PAIN
     Route: 048
     Dates: start: 20010601, end: 20030403
  7. ULTRAM [Concomitant]
     Route: 055

REACTIONS (4)
  - DIZZINESS [None]
  - DUODENAL ULCER HAEMORRHAGE [None]
  - DYSPNOEA [None]
  - GASTRITIS [None]
